FAERS Safety Report 8966688 (Version 9)
Quarter: 2013Q4

REPORT INFORMATION
  Report Type: Report from Study
  Country: GB (occurrence: GB)
  Receive Date: 20121217
  Receipt Date: 20131003
  Transmission Date: 20140711
  Serious: Yes (Hospitalization, Other)
  Sender: FDA-Public Use
  Company Number: GB-VERTEX PHARMACEUTICALS INC.-2012-026202

PATIENT
  Age: 55 Year
  Sex: Female
  Weight: 75 kg

DRUGS (19)
  1. VX-950 (TELAPREVIR) [Suspect]
     Indication: CHRONIC HEPATITIS C
     Dosage: 750 MG, TID
     Route: 048
     Dates: start: 20121023, end: 20121207
  2. RIBAVIRIN [Suspect]
     Indication: CHRONIC HEPATITIS C
     Dosage: DOSAGE FORM: TABLET, 400MG IN THE AM, 600MG IN THE PM
     Route: 048
     Dates: start: 20121023, end: 20121204
  3. RIBAVIRIN [Suspect]
     Dosage: 400 MG, QD
     Route: 048
     Dates: start: 20121204, end: 20121214
  4. RIBAVIRIN [Suspect]
     Dosage: DOSAGE FORM: TABLET, 200MG IN THE AM, 400MG IN THE PM
     Route: 048
     Dates: start: 20121214, end: 20130115
  5. RIBAVIRIN [Suspect]
     Dosage: 400 MG, QD
     Route: 048
     Dates: start: 20130115, end: 20130131
  6. RIBAVIRIN [Suspect]
     Dosage: DOSAGE FORM: TABLET, 200MG IN THE AM, 400MG IN THE PM
     Route: 048
     Dates: start: 20130131, end: 20130212
  7. RIBAVIRIN [Suspect]
     Dosage: 400 MG, QD
     Route: 048
     Dates: start: 20130212, end: 20130227
  8. RIBAVIRIN [Suspect]
     Dosage: DOSAGE FORM: TABLET, 400MG IN THE AM, 600MG IN THE PM
     Route: 048
     Dates: start: 20130227, end: 20130503
  9. PEG INTERFERON [Suspect]
     Indication: CHRONIC HEPATITIS C
     Dosage: 100 ?G, UNK
     Route: 058
     Dates: start: 20121023, end: 20121207
  10. PARACETAMOL [Concomitant]
     Dosage: 1 G, TID
  11. TRIMETHOPRIM [Concomitant]
     Dosage: DOSAGE FORM: UNSPECIFIED
     Route: 065
     Dates: start: 20121113, end: 20121121
  12. CETIRIZINE [Concomitant]
     Dosage: 10 MG, PRN
  13. CETIRIZINE [Concomitant]
     Dosage: DOSAGE FORM: UNSPECIFIED
     Route: 065
  14. FOSTAIR [Concomitant]
     Dosage: INHALATION, 100/6
     Route: 055
  15. FOSTAIR [Concomitant]
     Dosage: DOSAGE FORM: INHALATION, 100/6
  16. SALMOL [Concomitant]
     Dosage: INHALATION
     Route: 055
  17. SALMOL [Concomitant]
     Dosage: DOSAGE FORM: INHALATION
  18. XYLOPROCT [Concomitant]
     Indication: PRODUCT USED FOR UNKNOWN INDICATION
  19. ONDANSETRON [Concomitant]
     Indication: NAUSEA

REACTIONS (23)
  - Vertigo [Not Recovered/Not Resolved]
  - Renal failure acute [Recovered/Resolved]
  - Urinary tract infection [Recovered/Resolved]
  - Pharyngitis [Recovered/Resolved]
  - Dehydration [Unknown]
  - Malaise [Not Recovered/Not Resolved]
  - Headache [Not Recovered/Not Resolved]
  - Haemorrhoids [Unknown]
  - Painful defaecation [Unknown]
  - Rash [Recovered/Resolved]
  - Vomiting [Recovered/Resolved]
  - Nausea [Not Recovered/Not Resolved]
  - Cystitis [Unknown]
  - Fatigue [Unknown]
  - Pain in extremity [Unknown]
  - Chills [Not Recovered/Not Resolved]
  - Hyperhidrosis [Not Recovered/Not Resolved]
  - Dizziness [Not Recovered/Not Resolved]
  - Anaemia [Unknown]
  - Oral candidiasis [Unknown]
  - Proctalgia [Not Recovered/Not Resolved]
  - Eczema [Recovered/Resolved]
  - Dry skin [Unknown]
